FAERS Safety Report 14805609 (Version 15)
Quarter: 2018Q4

REPORT INFORMATION
  Report Type: Spontaneous
  Country: US (occurrence: US)
  Receive Date: 20180425
  Receipt Date: 20181201
  Transmission Date: 20190204
  Serious: No
  Sender: FDA-Public Use
  Company Number: US-PFIZER INC-2018168305

PATIENT
  Age: 70 Year
  Sex: Male
  Weight: 91 kg

DRUGS (24)
  1. XGEVA [Concomitant]
     Active Substance: DENOSUMAB
     Indication: BONE DISORDER
     Dosage: UNK
     Dates: start: 201611
  2. VITAMIN D [Concomitant]
     Active Substance: CHOLECALCIFEROL
     Dosage: UNK
  3. SUTENT [Suspect]
     Active Substance: SUNITINIB MALATE
     Indication: PANCREATIC NEUROENDOCRINE TUMOUR METASTATIC
     Dosage: 37.5 MG, 1X/DAY
     Route: 048
     Dates: start: 20180505, end: 2018
  4. LANREOTIDE [Concomitant]
     Active Substance: LANREOTIDE
     Indication: DIARRHOEA
     Dosage: UNK
     Dates: start: 201011
  5. TRAZODONE [Concomitant]
     Active Substance: TRAZODONE HYDROCHLORIDE
     Dosage: UNK
  6. PRAVASTATIN. [Concomitant]
     Active Substance: PRAVASTATIN
     Dosage: UNK
  7. XGEVA [Concomitant]
     Active Substance: DENOSUMAB
     Indication: BONE CANCER
  8. XARELTO [Concomitant]
     Active Substance: RIVAROXABAN
     Dosage: UNK
  9. IMODIUM [Concomitant]
     Active Substance: LOPERAMIDE HYDROCHLORIDE
     Indication: DIARRHOEA
     Dosage: UNK
  10. METOPROLOL. [Concomitant]
     Active Substance: METOPROLOL
     Dosage: UNK
  11. LANREOTIDE [Concomitant]
     Active Substance: LANREOTIDE
     Indication: NEUROENDOCRINE TUMOUR
     Dosage: UNK
     Dates: start: 201611
  12. TRESIBA [Concomitant]
     Active Substance: INSULIN DEGLUDEC
     Dosage: UNK
  13. SOMNAPURE [Concomitant]
     Dosage: UNK
  14. METFORMIN [Concomitant]
     Active Substance: METFORMIN HYDROCHLORIDE
     Dosage: UNK
  15. FISH OIL [Concomitant]
     Active Substance: FISH OIL
     Dosage: UNK
  16. FLAX SEED [Concomitant]
     Active Substance: FLAX SEED
     Dosage: UNK
  17. TRAMADOL. [Concomitant]
     Active Substance: TRAMADOL
     Dosage: UNK
  18. PROSCAR [Concomitant]
     Active Substance: FINASTERIDE
     Dosage: UNK
  19. LISINOPRIL. [Concomitant]
     Active Substance: LISINOPRIL
     Dosage: UNK
  20. BENADRYL [Concomitant]
     Active Substance: DIPHENHYDRAMINE HYDROCHLORIDE
     Dosage: UNK, 1X/DAY (AT NIGHT, HS)
  21. BORAGE OIL [Concomitant]
     Active Substance: BORAGE OIL
     Dosage: UNK
  22. SUTENT [Suspect]
     Active Substance: SUNITINIB MALATE
     Dosage: 37.5 MG, CYCLIC (2 WEEKS ON / 1 WEEK OFF)
     Route: 048
     Dates: start: 2018
  23. NORCO [Concomitant]
     Active Substance: ACETAMINOPHEN\HYDROCODONE BITARTRATE
     Dosage: UNK
  24. FINASTERIDE. [Concomitant]
     Active Substance: FINASTERIDE
     Dosage: UNK

REACTIONS (21)
  - Blood creatinine increased [Not Recovered/Not Resolved]
  - Neoplasm progression [Unknown]
  - Weight decreased [Recovered/Resolved]
  - Dry mouth [Unknown]
  - Fatigue [Not Recovered/Not Resolved]
  - Stomatitis [Recovered/Resolved]
  - Weight increased [Unknown]
  - Pain [Not Recovered/Not Resolved]
  - Dysgeusia [Not Recovered/Not Resolved]
  - Intervertebral disc degeneration [Unknown]
  - Musculoskeletal pain [Unknown]
  - Weight fluctuation [Recovering/Resolving]
  - Arthritis [Unknown]
  - Epistaxis [Unknown]
  - Hair colour changes [Unknown]
  - Hypertension [Unknown]
  - Dizziness [Unknown]
  - Thirst [Unknown]
  - Arthralgia [Unknown]
  - Back pain [Recovered/Resolved]
  - Lip dry [Unknown]

NARRATIVE: CASE EVENT DATE: 2018
